FAERS Safety Report 8762099 (Version 1)
Quarter: 2012Q4

REPORT INFORMATION
  Report Type: 
  Country: US (occurrence: US)
  Receive Date: 20120830
  Receipt Date: 20120830
  Transmission Date: 20130627
  Serious: Yes (Death)
  Sender: FDA-Public Use
  Company Number: US-CELGENEUS-163-21880-12082986

PATIENT
  Age: 61 Year
  Sex: Male

DRUGS (7)
  1. REVLIMID [Suspect]
     Indication: MULTIPLE MYELOMA
     Dosage: 25 Milligram
     Route: 048
     Dates: start: 20110311
  2. FISH OIL [Concomitant]
     Indication: DRUG USE FOR UNKNOWN INDICATION
     Route: 048
  3. GABAPENTIN [Concomitant]
     Indication: DRUG USE FOR UNKNOWN INDICATION
     Dosage: 100 Milligram
     Route: 048
  4. TAMSULOSIN [Concomitant]
     Indication: DRUG USE FOR UNKNOWN INDICATION
     Dosage: .4 Milligram
     Route: 048
  5. TRAMADOL HCL [Concomitant]
     Indication: DRUG USE FOR UNKNOWN INDICATION
     Dosage: 150 Milligram
     Route: 048
  6. MULTIVITAMINS [Concomitant]
     Indication: DRUG USE FOR UNKNOWN INDICATION
     Route: 048
  7. TYLENOL 8 HOUR [Concomitant]
     Indication: DRUG USE FOR UNKNOWN INDICATION
     Dosage: 650 Milligram
     Route: 048

REACTIONS (1)
  - Death [Fatal]
